FAERS Safety Report 15127264 (Version 1)
Quarter: 2018Q3

REPORT INFORMATION
  Report Type: Report from Study
  Country: ES (occurrence: ES)
  Receive Date: 20180710
  Receipt Date: 20180710
  Transmission Date: 20181010
  Serious: Yes (Hospitalization)
  Sender: FDA-Public Use
  Company Number: ES-TEVA-2018-ES-922920

PATIENT
  Age: 50 Year
  Sex: Female

DRUGS (9)
  1. LYRICA 150 MG CAPSULAS DURAS, 100 C?PSULAS [Concomitant]
     Dosage: 1?0?1
     Route: 048
     Dates: start: 20161209
  2. LORMETAZEPAM (88A) [Suspect]
     Active Substance: LORMETAZEPAM
     Indication: SUICIDE ATTEMPT
     Dosage: 25 COMP DE 2 MG
     Dates: start: 20170919, end: 20170919
  3. LISINOPRIL/ HIDROCLOROTIAZIDA 20/12,5 MG COMPRIMIDOS EFG , 28 COMPRIMI [Concomitant]
     Indication: HYPERTENSION
     Dosage: 1?0?0
     Route: 048
     Dates: start: 20070101
  4. AIRFLUSAL FORSPIRO 50 MICROGRAMOS/250 MICROGRAMOS/INHALACION POLVO PAR [Concomitant]
     Dosage: 1?0?1
     Route: 055
     Dates: start: 20130101
  5. EKLIRA GENUAIR 322 MICROGRAMOS POLVO PARA INHALACION , 1 INHALADOR DE [Concomitant]
     Dosage: 1?0?1
     Route: 055
     Dates: start: 20140212
  6. QUETIAPINA (1136A) [Suspect]
     Active Substance: QUETIAPINE
     Indication: SUICIDE ATTEMPT
     Dosage: 25MG, 69 COMP
     Route: 048
     Dates: start: 20170919, end: 20170919
  7. VENLAFAXINA (2664A) [Concomitant]
     Active Substance: VENLAFAXINE HYDROCHLORIDE
     Route: 048
     Dates: start: 20161209
  8. AGOMELATINA (8293A) [Concomitant]
     Dosage: 25MG 0?0?1
     Route: 048
  9. LORAZEPAM (1864A) [Suspect]
     Active Substance: LORAZEPAM
     Indication: SUICIDE ATTEMPT
     Dosage: 25 CPS DE 1 MG
     Route: 048
     Dates: start: 20170919, end: 20170919

REACTIONS (2)
  - Hepatitis [Recovered/Resolved]
  - Depressed level of consciousness [Recovered/Resolved]

NARRATIVE: CASE EVENT DATE: 20170919
